FAERS Safety Report 9522865 (Version 1)
Quarter: 2013Q3

REPORT INFORMATION
  Report Type: Spontaneous
  Country: CA (occurrence: None)
  Receive Date: 20130911
  Receipt Date: 20130911
  Transmission Date: 20140515
  Serious: No
  Sender: FDA-Public Use
  Company Number: AECAN201200513

PATIENT
  Age: 14 Year
  Sex: Male

DRUGS (1)
  1. IGIVNEX [Suspect]
     Indication: IMMUNE THROMBOCYTOPENIC PURPURA
     Route: 042

REACTIONS (3)
  - Nausea [None]
  - Vomiting [None]
  - Headache [None]
